FAERS Safety Report 25224779 (Version 1)
Quarter: 2025Q2

REPORT INFORMATION
  Report Type: Spontaneous
  Country: CA (occurrence: CA)
  Receive Date: 20250422
  Receipt Date: 20250422
  Transmission Date: 20250716
  Serious: Yes (Other)
  Sender: ACCORD
  Company Number: CA-Accord-480818

PATIENT
  Age: 29 Year
  Sex: Female

DRUGS (12)
  1. ARIPIPRAZOLE [Suspect]
     Active Substance: ARIPIPRAZOLE
     Indication: Psychotic disorder
     Dates: start: 2019
  2. ARIPIPRAZOLE [Suspect]
     Active Substance: ARIPIPRAZOLE
     Indication: Generalised anxiety disorder
     Dates: start: 2019
  3. ARIPIPRAZOLE [Suspect]
     Active Substance: ARIPIPRAZOLE
     Indication: Panic disorder
     Dates: start: 2019
  4. ARIPIPRAZOLE [Suspect]
     Active Substance: ARIPIPRAZOLE
     Indication: Substance use disorder
     Dates: start: 2019
  5. ARIPIPRAZOLE [Suspect]
     Active Substance: ARIPIPRAZOLE
     Indication: Psychotic disorder
     Dosage: INCREASED
     Dates: start: 2021
  6. ARIPIPRAZOLE [Suspect]
     Active Substance: ARIPIPRAZOLE
     Indication: Generalised anxiety disorder
     Dosage: INCREASED
     Dates: start: 2021
  7. ARIPIPRAZOLE [Suspect]
     Active Substance: ARIPIPRAZOLE
     Indication: Panic disorder
     Dosage: INCREASED
     Dates: start: 2021
  8. ARIPIPRAZOLE [Suspect]
     Active Substance: ARIPIPRAZOLE
     Indication: Substance use disorder
     Dosage: INCREASED
     Dates: start: 2021
  9. ARIPIPRAZOLE [Suspect]
     Active Substance: ARIPIPRAZOLE
     Indication: Psychotic disorder
     Dosage: INCREASED
     Dates: start: 2023, end: 2023
  10. ARIPIPRAZOLE [Suspect]
     Active Substance: ARIPIPRAZOLE
     Indication: Generalised anxiety disorder
     Dosage: INCREASED
     Dates: start: 2023, end: 2023
  11. ARIPIPRAZOLE [Suspect]
     Active Substance: ARIPIPRAZOLE
     Indication: Panic disorder
     Dosage: INCREASED
     Dates: start: 2023, end: 2023
  12. ARIPIPRAZOLE [Suspect]
     Active Substance: ARIPIPRAZOLE
     Indication: Substance use disorder
     Dosage: INCREASED
     Dates: start: 2023, end: 2023

REACTIONS (2)
  - Drug dependence [Recovered/Resolved]
  - Alcoholism [Recovered/Resolved]

NARRATIVE: CASE EVENT DATE: 20230101
